FAERS Safety Report 21159552 (Version 3)
Quarter: 2022Q3

REPORT INFORMATION
  Report Type: Spontaneous
  Country: US (occurrence: US)
  Receive Date: 20220802
  Receipt Date: 20220922
  Transmission Date: 20221027
  Serious: No
  Sender: FDA-Public Use
  Company Number: US-PFIZER INC-202200986800

PATIENT
  Age: 16 Year
  Sex: Male
  Weight: 65.77 kg

DRUGS (2)
  1. GENOTROPIN [Suspect]
     Active Substance: SOMATROPIN
     Indication: Growth hormone deficiency
     Dosage: 2.6 MG, 1X/DAY ( INJECTED EVERY NIGHT)
  2. GENOTROPIN [Suspect]
     Active Substance: SOMATROPIN
     Dosage: 2.6 MG, 1X/DAY (INJECTED EVERY NIGHT )

REACTIONS (4)
  - Drug dose omission by device [Unknown]
  - Device issue [Unknown]
  - Poor quality device used [Unknown]
  - Product leakage [Unknown]

NARRATIVE: CASE EVENT DATE: 20220701
